FAERS Safety Report 7543260-0 (Version None)
Quarter: 2011Q2

REPORT INFORMATION
  Report Type: 
  Country: None (occurrence: None)
  Receive Date: 20110613
  Receipt Date: 20101025
  Transmission Date: 20111010
  Serious: No
  Sender: FDA-Public Use
  Company Number: US-PFIZER INC-US-WYE-H18356510

PATIENT
  Sex: Male

DRUGS (1)
  1. AXID AR [Suspect]
     Dosage: UNKNOWN DOSE TWICE A DAY
     Route: 048

REACTIONS (1)
  - ARTHRALGIA [None]
